FAERS Safety Report 13512064 (Version 2)
Quarter: 2017Q2

REPORT INFORMATION
  Report Type: Spontaneous
  Country: US (occurrence: US)
  Receive Date: 20170504
  Receipt Date: 20170511
  Transmission Date: 20170830
  Serious: Yes (Life-Threatening, Hospitalization, Other)
  Sender: FDA-Public Use
  Company Number: US-DRREDDYS-USA/USA/17/0090278

PATIENT
  Age: 71 Year
  Sex: Female

DRUGS (1)
  1. ALLOPURINOL. [Suspect]
     Active Substance: ALLOPURINOL
     Indication: PROPHYLAXIS
     Route: 065

REACTIONS (23)
  - Oesophagitis [Recovering/Resolving]
  - Hyperglycaemia [Recovering/Resolving]
  - Toxic epidermal necrolysis [Recovering/Resolving]
  - Leukocytosis [Unknown]
  - Renal tubular necrosis [Unknown]
  - Klebsiella infection [Unknown]
  - Acinetobacter infection [Unknown]
  - Constipation [Unknown]
  - Sepsis [Recovering/Resolving]
  - Hypernatraemia [Recovering/Resolving]
  - Gastric ulcer [Recovering/Resolving]
  - Haemolytic anaemia [Unknown]
  - Anaemia [Unknown]
  - Thrombocytopenia [Unknown]
  - Metabolic acidosis [Unknown]
  - Hypernatraemia [Unknown]
  - Ileus [Recovering/Resolving]
  - Acute kidney injury [Recovering/Resolving]
  - Hypotension [Recovering/Resolving]
  - Gastrointestinal haemorrhage [Unknown]
  - Intestinal perforation [Unknown]
  - Diarrhoea [Recovering/Resolving]
  - Melaena [Recovered/Resolved]
